FAERS Safety Report 15858816 (Version 2)
Quarter: 2019Q1

REPORT INFORMATION
  Report Type: Spontaneous
  Country: US (occurrence: US)
  Receive Date: 20190123
  Receipt Date: 20190129
  Transmission Date: 20190417
  Serious: Yes (Other)
  Sender: FDA-Public Use
  Company Number: US-OTSUKA-2018_026383

PATIENT
  Age: 52 Year
  Sex: Male

DRUGS (2)
  1. ABILIFY [Suspect]
     Active Substance: ARIPIPRAZOLE
     Indication: BIPOLAR DISORDER
     Dosage: 10 MG, QD
     Route: 065
     Dates: start: 20070928
  2. ABILIFY [Suspect]
     Active Substance: ARIPIPRAZOLE
     Indication: ANXIETY
     Dosage: 30 MG, QD
     Route: 065
     Dates: end: 20150301

REACTIONS (17)
  - Rash pustular [Unknown]
  - Obsessive-compulsive disorder [Not Recovered/Not Resolved]
  - Night blindness [Unknown]
  - Blood glucose decreased [Unknown]
  - Rash [Unknown]
  - Bankruptcy [Unknown]
  - Gambling disorder [Not Recovered/Not Resolved]
  - Economic problem [Unknown]
  - Product use in unapproved indication [Unknown]
  - Carbuncle [Recovering/Resolving]
  - Alanine aminotransferase increased [Unknown]
  - Rash pruritic [Unknown]
  - Glycosylated haemoglobin increased [Unknown]
  - Male orgasmic disorder [Unknown]
  - Pain in extremity [Unknown]
  - Compulsive shopping [Not Recovered/Not Resolved]
  - Penis injury [Unknown]

NARRATIVE: CASE EVENT DATE: 20071101
